FAERS Safety Report 10400981 (Version 3)
Quarter: 2014Q4

REPORT INFORMATION
  Report Type: Report from Study
  Country: MX (occurrence: MX)
  Receive Date: 20140821
  Receipt Date: 20141203
  Transmission Date: 20150528
  Serious: Yes (Other)
  Sender: FDA-Public Use
  Company Number: PHHY2014MX104396

PATIENT
  Age: 74 Year
  Sex: Female
  Weight: 54 kg

DRUGS (7)
  1. RASILEZ [Suspect]
     Active Substance: ALISKIREN
     Dosage: 1 DF, Q72H
     Route: 065
  2. DABEX [Concomitant]
     Indication: DIABETES MELLITUS
     Dosage: 1 DF IN THE MORNING AND 0.75 DF AT NIGHT
     Route: 065
     Dates: start: 201108
  3. RASILEZ [Suspect]
     Active Substance: ALISKIREN
     Indication: RENAL IMPAIRMENT
     Dosage: 0.5 DF (300 MG), UNK
     Route: 048
  4. RASILEZ [Suspect]
     Active Substance: ALISKIREN
     Dosage: 1 DF, QD
     Route: 065
     Dates: start: 20110701
  5. RASILEZ [Suspect]
     Active Substance: ALISKIREN
     Indication: OFF LABEL USE
     Dosage: 0.5 DF (300 MG), UNK
     Route: 048
  6. ADALAT CC [Concomitant]
     Active Substance: NIFEDIPINE
     Indication: BLOOD PRESSURE ABNORMAL
     Dosage: 30 MG, QD
     Route: 065
     Dates: start: 200708
  7. GALVUS [Concomitant]
     Active Substance: VILDAGLIPTIN
     Indication: DIABETES MELLITUS
     Dosage: 1 DF (50 MG), UNK
     Route: 048
     Dates: start: 201012

REACTIONS (24)
  - Hiccups [Not Recovered/Not Resolved]
  - Suffocation feeling [Recovered/Resolved]
  - Skin discolouration [Recovering/Resolving]
  - Arthropathy [Not Recovered/Not Resolved]
  - Dyspnoea [Not Recovered/Not Resolved]
  - Feeling abnormal [Not Recovered/Not Resolved]
  - Fatigue [Not Recovered/Not Resolved]
  - Infection [Unknown]
  - Cerumen impaction [Not Recovered/Not Resolved]
  - Thermal burn [Recovering/Resolving]
  - Tachycardia [Not Recovered/Not Resolved]
  - Erythema [Recovering/Resolving]
  - General physical health deterioration [Unknown]
  - Asthenia [Not Recovered/Not Resolved]
  - Weight decreased [Recovering/Resolving]
  - Gastrointestinal pain [Unknown]
  - Ear pain [Not Recovered/Not Resolved]
  - Chest pain [Recovering/Resolving]
  - Nail discolouration [Recovering/Resolving]
  - Bronchitis [Recovered/Resolved]
  - Alopecia [Unknown]
  - Ear discomfort [Not Recovered/Not Resolved]
  - Diarrhoea [Recovered/Resolved]
  - Wrong technique in drug usage process [Not Recovered/Not Resolved]

NARRATIVE: CASE EVENT DATE: 201208
